FAERS Safety Report 13533080 (Version 1)
Quarter: 2017Q2

REPORT INFORMATION
  Report Type: Spontaneous
  Country: CN (occurrence: CN)
  Receive Date: 20170510
  Receipt Date: 20170510
  Transmission Date: 20170830
  Serious: Yes (Other)
  Sender: FDA-Public Use
  Company Number: CN-UNITED THERAPEUTICS-UNT-2017-006728

PATIENT
  Age: 29 Year
  Sex: Female

DRUGS (1)
  1. REMODULIN [Suspect]
     Active Substance: TREPROSTINIL
     Indication: PULMONARY ARTERIAL HYPERTENSION
     Dosage: 0.00125 ?G/KG, CONTINUING
     Route: 041
     Dates: start: 20170427

REACTIONS (3)
  - Caesarean section [Unknown]
  - Premature delivery [Unknown]
  - Maternal exposure during pregnancy [Unknown]

NARRATIVE: CASE EVENT DATE: 20170428
